FAERS Safety Report 9752023 (Version 3)
Quarter: 2014Q1

REPORT INFORMATION
  Report Type: Spontaneous
  Country: US (occurrence: US)
  Receive Date: 20131213
  Receipt Date: 20140121
  Transmission Date: 20141002
  Serious: Yes (Other)
  Sender: FDA-Public Use
  Company Number: US-009507513-1312USA003465

PATIENT
  Age: 25 Year
  Sex: Female
  Weight: 133.79 kg

DRUGS (2)
  1. IMPLANON [Suspect]
     Indication: CONTRACEPTION
     Dosage: 1 ROD
     Route: 059
     Dates: start: 201109, end: 20131227
  2. NUVARING [Suspect]
     Route: 067

REACTIONS (4)
  - Gastric bypass [Unknown]
  - Medical device complication [Recovered/Resolved]
  - Weight decreased [Unknown]
  - Device deployment issue [Recovered/Resolved]
